FAERS Safety Report 9292876 (Version 1)
Quarter: 2013Q2

REPORT INFORMATION
  Report Type: Spontaneous
  Country: US (occurrence: US)
  Receive Date: 20130516
  Receipt Date: 20130516
  Transmission Date: 20140414
  Serious: No
  Sender: FDA-Public Use
  Company Number: US-B.I. PHARMACEUTICALS,INC./RIDGEFIELD-2013-BI-13508BP

PATIENT
  Age: 63 Year
  Sex: Female
  Weight: 66 kg

DRUGS (8)
  1. MIRAPEX [Suspect]
     Indication: RESTLESS LEGS SYNDROME
     Dosage: 0.5 MG
     Route: 048
     Dates: start: 2008
  2. MELOXICAM [Concomitant]
     Indication: NEUROPATHY PERIPHERAL
     Dosage: 7.5 MG
     Route: 048
  3. ADVAIR [Concomitant]
     Indication: DYSPNOEA
     Dosage: STRENGTH: 100MG/50MG; DAILY DOSE: 100MG/50MG
     Route: 055
  4. LORTAB [Concomitant]
     Indication: PAIN
     Route: 048
  5. CYMBALTA [Concomitant]
     Indication: NEUROPATHY PERIPHERAL
     Dosage: 60 MG
     Route: 048
  6. GABAPENTIN [Concomitant]
     Indication: NEUROPATHY PERIPHERAL
     Dosage: 300 MG
     Route: 048
  7. VITAMIN D [Concomitant]
     Indication: NEUROPATHY PERIPHERAL
     Dosage: 500 U
  8. NEXIUM [Concomitant]
     Indication: GASTROOESOPHAGEAL REFLUX DISEASE
     Dosage: 40 MG
     Route: 048

REACTIONS (2)
  - Nervousness [Not Recovered/Not Resolved]
  - Muscle twitching [Not Recovered/Not Resolved]
